FAERS Safety Report 14197175 (Version 3)
Quarter: 2018Q1

REPORT INFORMATION
  Report Type: Spontaneous
  Country: US (occurrence: US)
  Receive Date: 20171116
  Receipt Date: 20180330
  Transmission Date: 20180508
  Serious: Yes (Death, Hospitalization, Other)
  Sender: FDA-Public Use
  Company Number: US-BAUSCH-BL-2017-018129

PATIENT
  Age: 63 Year
  Sex: Female
  Weight: 63.56 kg

DRUGS (1)
  1. XIFAXAN [Suspect]
     Active Substance: RIFAXIMIN
     Indication: HEPATIC CANCER
     Route: 048

REACTIONS (5)
  - Cellulitis [Unknown]
  - Product use in unapproved indication [Unknown]
  - Hepatic encephalopathy [Unknown]
  - Malaise [Recovered/Resolved]
  - Death [Fatal]

NARRATIVE: CASE EVENT DATE: 20180310
